FAERS Safety Report 6844837-8 (Version None)
Quarter: 2010Q3

REPORT INFORMATION
  Report Type: 
  Country: None (occurrence: None)
  Receive Date: 20100713
  Receipt Date: 20100210
  Transmission Date: 20110219
  Serious: Yes (Hospitalization)
  Sender: FDA-Public Use
  Company Number: 1-17292150

PATIENT
  Age: 68 Year
  Sex: Female
  Weight: 56.6996 kg

DRUGS (9)
  1. QUININE SULFATE [Suspect]
     Indication: MUSCLE SPASMS
     Dosage: ORAL
     Route: 048
     Dates: start: 20050409
  2. HYDROCHLOROTHIAZIDE [Concomitant]
  3. IBUPROFEN TABLETS [Concomitant]
  4. WELLBUTRIN [Concomitant]
  5. FLOVENT HFA [Concomitant]
  6. ALBUTEROL [Concomitant]
  7. MIRAPEX [Concomitant]
  8. BYSTOLIC [Concomitant]
  9. LINISOPRIL [Concomitant]

REACTIONS (4)
  - BLOOD BLISTER [None]
  - CONTUSION [None]
  - THROMBOCYTOPENIA [None]
  - VOMITING [None]
